FAERS Safety Report 7023494-4 (Version None)
Quarter: 2010Q3

REPORT INFORMATION
  Report Type: 
  Country: None (occurrence: None)
  Receive Date: 20100929
  Receipt Date: 20100929
  Transmission Date: 20110219
  Serious: Yes (Life-Threatening, Hospitalization)
  Sender: FDA-Public Use
  Company Number: None

PATIENT
  Age: 67 Year
  Sex: Male

DRUGS (1)
  1. MELOXICAM [Suspect]
     Dosage: TAKE ONE TABLET TWICE A DAY
     Dates: start: 20100701

REACTIONS (1)
  - MYOCARDIAL INFARCTION [None]
